FAERS Safety Report 5606075-6 (Version None)
Quarter: 2008Q1

REPORT INFORMATION
  Report Type: 
  Country: None (occurrence: None)
  Receive Date: 20080129
  Receipt Date: 20080123
  Transmission Date: 20080703
  Serious: Yes (Death)
  Sender: FDA-Public Use
  Company Number: JP-SANOFI-SYNTHELABO-F01200800129

PATIENT
  Sex: Male
  Weight: 56 kg

DRUGS (5)
  1. MAGNESIUM OXIDE [Concomitant]
     Route: 048
     Dates: start: 20060525
  2. TELMISARTAN [Concomitant]
     Indication: HYPERTENSION
     Dosage: 20 MG
     Route: 048
     Dates: start: 20070222
  3. ASPIRIN [Concomitant]
     Indication: ANTIPLATELET THERAPY
     Dosage: 100 MG
     Route: 048
     Dates: start: 20070305, end: 20070312
  4. ASPIRIN [Concomitant]
     Indication: ANTICOAGULANT THERAPY
     Dosage: 100 MG
     Route: 048
     Dates: start: 20070305, end: 20070312
  5. CLOPIDOGREL [Suspect]
     Indication: CEREBROVASCULAR DISORDER
     Dosage: 75 MG
     Route: 048
     Dates: start: 20070313, end: 20070719

REACTIONS (1)
  - MYOCARDIAL ISCHAEMIA [None]
